FAERS Safety Report 8852955 (Version 6)
Quarter: 2013Q3

REPORT INFORMATION
  Report Type: Spontaneous
  Country: US (occurrence: US)
  Receive Date: 20121022
  Receipt Date: 20130823
  Transmission Date: 20140515
  Serious: Yes (Hospitalization, Other)
  Sender: FDA-Public Use
  Company Number: US-009507513-1203USA01178

PATIENT
  Sex: Female
  Weight: 36.28 kg

DRUGS (5)
  1. FOSAMAX [Suspect]
     Indication: OSTEOPOROSIS
     Dosage: 70 MG, QW
     Route: 048
  2. METHOTREXATE [Concomitant]
     Indication: RHEUMATOID ARTHRITIS
     Dosage: UNK
     Dates: start: 1990, end: 2011
  3. GLUCOPHAGE [Concomitant]
     Indication: DIABETES MELLITUS
     Dosage: 1 QD
     Dates: start: 1991, end: 2005
  4. CORTICOSTEROIDS (UNSPECIFIED) [Concomitant]
     Dosage: UNK
     Dates: start: 1990, end: 201202
  5. ULTRAM [Concomitant]
     Indication: RHEUMATOID ARTHRITIS
     Dosage: PRN
     Dates: start: 20040101

REACTIONS (60)
  - Femoral neck fracture [Unknown]
  - Open reduction of fracture [Unknown]
  - Postoperative fever [Unknown]
  - Anaemia postoperative [Unknown]
  - Colectomy [Unknown]
  - Arthrodesis [Unknown]
  - Arthrodesis [Unknown]
  - Medical device removal [Unknown]
  - Spinal fusion surgery [Unknown]
  - Tendon operation [Unknown]
  - Synovectomy [Unknown]
  - Adenocarcinoma of colon [Unknown]
  - Pneumonia [Unknown]
  - Pancytopenia [Recovered/Resolved]
  - Osteoarthritis [Unknown]
  - Osteoarthritis [Unknown]
  - Spinal laminectomy [Unknown]
  - Knee arthroplasty [Unknown]
  - Low turnover osteopathy [Unknown]
  - Endodontic procedure [Unknown]
  - Tooth loss [Unknown]
  - Dental implantation [Unknown]
  - Dental implantation [Unknown]
  - Osteopenia [Unknown]
  - Microcytic anaemia [Not Recovered/Not Resolved]
  - Transfusion [Unknown]
  - Bronchitis [Unknown]
  - Gastrointestinal disorder [Unknown]
  - Liver disorder [Unknown]
  - Adverse event [Unknown]
  - Nervous system disorder [Unknown]
  - Tuberculosis [Unknown]
  - Medical device complication [Unknown]
  - Large intestine polyp [Unknown]
  - Bursitis [Unknown]
  - Muscle atrophy [Unknown]
  - Foot fracture [Unknown]
  - Joint dislocation [Unknown]
  - Hypoaesthesia [Unknown]
  - Paraesthesia [Unknown]
  - Ligament disorder [Not Recovered/Not Resolved]
  - Central nervous system lesion [Unknown]
  - Radiculopathy [Unknown]
  - Vision blurred [Unknown]
  - Ligament disorder [Unknown]
  - Rheumatoid arthritis [Unknown]
  - Migraine [Unknown]
  - Sinusitis [Unknown]
  - Chest pain [Unknown]
  - Wrist surgery [Unknown]
  - Pneumonia [Unknown]
  - Medical device pain [Unknown]
  - Joint dislocation [Unknown]
  - Pneumonia [Unknown]
  - Haemorrhoid operation [Unknown]
  - Headache [Unknown]
  - Metatarsalgia [Unknown]
  - Abdominal pain [Unknown]
  - Neck pain [Unknown]
  - Arthralgia [Unknown]
